FAERS Safety Report 8337073-X (Version None)
Quarter: 2012Q2

REPORT INFORMATION
  Report Type: 
  Country: None (occurrence: None)
  Receive Date: 20120504
  Receipt Date: 20120430
  Transmission Date: 20120825
  Serious: Yes (Disabling, Other)
  Sender: FDA-Public Use
  Company Number: US-PFIZER INC-2012028722

PATIENT
  Sex: Male
  Weight: 90.703 kg

DRUGS (7)
  1. EFFEXOR XR [Suspect]
     Indication: BIPOLAR DISORDER
     Dosage: 75 MG, DAILY
     Route: 048
  2. LAMOTRIGINE [Concomitant]
     Indication: BIPOLAR DISORDER
     Dosage: 200 MG, DAILY
  3. CRESTOR [Concomitant]
     Indication: BLOOD CHOLESTEROL INCREASED
     Dosage: 20 MG, DAILY
  4. PRISTIQ [Concomitant]
     Dosage: 40 MG, DAILY
  5. PRAMIPEXOLE [Concomitant]
     Dosage: 0.25 MG, DAILY
     Route: 048
  6. EFFEXOR XR [Suspect]
     Dosage: 150 MG, DAILY
     Route: 048
  7. SEROQUEL [Concomitant]
     Indication: BIPOLAR DISORDER
     Dosage: UNK, DAILY AT NIGHT

REACTIONS (3)
  - BIPOLAR DISORDER [None]
  - BACK DISORDER [None]
  - FOREIGN BODY [None]
